FAERS Safety Report 24834485 (Version 2)
Quarter: 2025Q1

REPORT INFORMATION
  Report Type: Spontaneous
  Country: US (occurrence: US)
  Receive Date: 20250113
  Receipt Date: 20250204
  Transmission Date: 20250408
  Serious: No
  Sender: SANOFI AVENTIS
  Company Number: US-SA-2025SA008756

PATIENT
  Sex: Male

DRUGS (1)
  1. DUPIXENT [Suspect]
     Active Substance: DUPILUMAB
     Indication: Dermatitis atopic
     Dosage: 300 MG, QOW
     Route: 058
     Dates: start: 202204

REACTIONS (6)
  - Mental status changes [Unknown]
  - General physical condition abnormal [Unknown]
  - Dry skin [Unknown]
  - Swelling of eyelid [Unknown]
  - Erythema [Unknown]
  - Dermatitis atopic [Unknown]
